FAERS Safety Report 25266406 (Version 1)
Quarter: 2025Q2

REPORT INFORMATION
  Report Type: Spontaneous
  Country: US (occurrence: US)
  Receive Date: 20250504
  Receipt Date: 20250504
  Transmission Date: 20250716
  Serious: No
  Sender: Haleon PLC
  Company Number: US-HALEON-2240248

PATIENT

DRUGS (2)
  1. ACETAMINOPHEN\ASPIRIN\DIPHENHYDRAMINE CITRATE [Suspect]
     Active Substance: ACETAMINOPHEN\ASPIRIN\DIPHENHYDRAMINE CITRATE
     Indication: Pain
  2. EXCEDRIN EXTRA STRENGTH [Suspect]
     Active Substance: ACETAMINOPHEN\ASPIRIN\CAFFEINE
     Indication: Pain

REACTIONS (2)
  - Drug effective for unapproved indication [Unknown]
  - Product use in unapproved indication [Unknown]
